FAERS Safety Report 9330239 (Version 1)
Quarter: 2013Q2

REPORT INFORMATION
  Report Type: Spontaneous
  Country: FR (occurrence: FR)
  Receive Date: 20130604
  Receipt Date: 20130604
  Transmission Date: 20140414
  Serious: Yes (Hospitalization)
  Sender: FDA-Public Use
  Company Number: FR-ABBOTT-13X-056-1098451-00

PATIENT
  Age: 61 Year
  Sex: Female

DRUGS (3)
  1. DEPAKOTE [Suspect]
     Indication: EPILEPSY
     Route: 048
     Dates: end: 20130513
  2. RISPERDAL [Suspect]
     Indication: EPILEPSY
     Route: 048
     Dates: end: 20130513
  3. KEPPRA [Suspect]
     Indication: EPILEPSY
     Route: 048
     Dates: end: 20130513

REACTIONS (2)
  - Altered state of consciousness [Not Recovered/Not Resolved]
  - Hyponatraemia [Not Recovered/Not Resolved]
